FAERS Safety Report 9434362 (Version 1)
Quarter: 2013Q3

REPORT INFORMATION
  Report Type: Spontaneous
  Country: US (occurrence: None)
  Receive Date: 20130731
  Receipt Date: 20130731
  Transmission Date: 20140515
  Serious: Yes (Disabling)
  Sender: FDA-Public Use
  Company Number: None

PATIENT
  Age: 80 Year
  Sex: Female

DRUGS (9)
  1. PROLIA [Suspect]
     Indication: OSTEOPOROSIS
     Dosage: 1 EACH 6 MONTHS INJECTION
     Dates: start: 20130409, end: 20130409
  2. METFORMIN [Concomitant]
  3. AGGRENOX [Concomitant]
  4. LOTREL [Concomitant]
  5. TRAMADOL [Concomitant]
  6. NITRO [Concomitant]
  7. ATENOLOL [Concomitant]
  8. CALCIUM [Concomitant]
  9. MULTIVITAMIN [Concomitant]

REACTIONS (3)
  - Heart rate decreased [None]
  - Sluggishness [None]
  - Asthenia [None]
